FAERS Safety Report 17941164 (Version 1)
Quarter: 2020Q2

REPORT INFORMATION
  Report Type: Spontaneous
  Country: US (occurrence: US)
  Receive Date: 20200624
  Receipt Date: 20200624
  Transmission Date: 20200714
  Serious: No
  Sender: FDA-Public Use
  Company Number: None

PATIENT
  Age: 13 Year
  Sex: Male
  Weight: 38.25 kg

DRUGS (3)
  1. HYDROXYZINE [Suspect]
     Active Substance: HYDROXYZINE HYDROCHLORIDE
     Indication: FEELING OF RELAXATION
     Dosage: ?          QUANTITY:12.5 ML;?
     Route: 048
     Dates: start: 20180907, end: 20191213
  2. VITAMIN D3 [Concomitant]
     Active Substance: CHOLECALCIFEROL
  3. VITAMIN C [Concomitant]
     Active Substance: ASCORBIC ACID

REACTIONS (5)
  - Somnolence [None]
  - Psychomotor hyperactivity [None]
  - Cognitive disorder [None]
  - Agitation [None]
  - Dysphoria [None]

NARRATIVE: CASE EVENT DATE: 20191206
